FAERS Safety Report 17631505 (Version 1)
Quarter: 2020Q2

REPORT INFORMATION
  Report Type: Spontaneous
  Country: US (occurrence: US)
  Receive Date: 20200406
  Receipt Date: 20200406
  Transmission Date: 20200713
  Serious: No
  Sender: FDA-Public Use
  Company Number: US-VERTEX PHARMACEUTICALS-2020-006739

PATIENT
  Age: 38 Year
  Sex: Female

DRUGS (1)
  1. TRIKAFTA [Suspect]
     Active Substance: ELEXACAFTOR\IVACAFTOR\TEZACAFTOR
     Indication: CYSTIC FIBROSIS
     Dosage: 2 TABLETS IN MORNING, 1 TABLET IN THE EVENING, BID
     Route: 048
     Dates: start: 20191212

REACTIONS (4)
  - Cough [Recovering/Resolving]
  - Flatulence [Recovering/Resolving]
  - Upper-airway cough syndrome [Unknown]
  - Abdominal pain [Recovering/Resolving]

NARRATIVE: CASE EVENT DATE: 201912
